FAERS Safety Report 20964956 (Version 6)
Quarter: 2022Q3

REPORT INFORMATION
  Report Type: Report from Study
  Country: US (occurrence: US)
  Receive Date: 20220616
  Receipt Date: 20220929
  Transmission Date: 20221027
  Serious: Yes (Other)
  Sender: FDA-Public Use
  Company Number: US-NOVARTISTESTPH-NVSC2022US138144

PATIENT
  Sex: Male

DRUGS (2)
  1. ENTRESTO [Suspect]
     Active Substance: SACUBITRIL\VALSARTAN
     Indication: Product used for unknown indication
     Dosage: UNK
     Route: 048
  2. ENTRESTO [Suspect]
     Active Substance: SACUBITRIL\VALSARTAN
     Dosage: 1 DOSAGE FORM (49/51 MG) (INCRESAED DOSE)
     Route: 065

REACTIONS (10)
  - Blood pressure increased [Unknown]
  - Amnesia [Unknown]
  - Hypoaesthesia [Unknown]
  - Dehydration [Unknown]
  - Panic attack [Unknown]
  - Cough [Unknown]
  - Depression [Unknown]
  - Paranasal sinus hypersecretion [Unknown]
  - Dizziness [Unknown]
  - Pruritus [Unknown]
